FAERS Safety Report 7817172-9 (Version None)
Quarter: 2011Q4

REPORT INFORMATION
  Report Type: 
  Country: None (occurrence: None)
  Receive Date: 20111017
  Receipt Date: 20111017
  Transmission Date: 20120403
  Serious: Yes (Other)
  Sender: FDA-Public Use
  Company Number: None

PATIENT
  Age: 45 Year
  Sex: Female

DRUGS (4)
  1. NABUMETONE [Suspect]
     Indication: BACK PAIN
     Dosage: 1 TABLET
     Route: 048
  2. NABUMETONE [Suspect]
     Indication: INFLAMMATION
     Dosage: 1 TABLET
     Route: 048
  3. ACETAMINOPHEN [Concomitant]
     Indication: TOOTHACHE
     Dosage: 1-2 TABLETS
     Route: 048
  4. ACETAMINOPHEN [Concomitant]
     Indication: HEADACHE
     Dosage: 1-2 TABLETS
     Route: 048

REACTIONS (1)
  - URTICARIA [None]
